FAERS Safety Report 6571131-5 (Version None)
Quarter: 2010Q1

REPORT INFORMATION
  Report Type: 
  Country: None (occurrence: None)
  Receive Date: 20100204
  Receipt Date: 20100126
  Transmission Date: 20100710
  Serious: Yes (Hospitalization)
  Sender: FDA-Public Use
  Company Number: TR-ELI_LILLY_AND_COMPANY-TR201001005958

PATIENT

DRUGS (2)
  1. HUMULIN R [Suspect]
     Indication: GESTATIONAL DIABETES
     Dosage: 12 U, 3/D
     Route: 064
     Dates: end: 20091202
  2. HUMULIN N [Suspect]
     Indication: GESTATIONAL DIABETES
     Dosage: 13 U, EACH EVENING
     Route: 064
     Dates: end: 20091202

REACTIONS (3)
  - DRUG EXPOSURE DURING PREGNANCY [None]
  - PREMATURE BABY [None]
  - SMALL FOR DATES BABY [None]
